FAERS Safety Report 20299556 (Version 5)
Quarter: 2023Q1

REPORT INFORMATION
  Report Type: Spontaneous
  Country: US (occurrence: US)
  Receive Date: 20220105
  Receipt Date: 20230309
  Transmission Date: 20230418
  Serious: Yes (Hospitalization, Other)
  Sender: FDA-Public Use
  Company Number: US-009507513-2201USA000275

PATIENT
  Sex: Male

DRUGS (1)
  1. KEYTRUDA [Suspect]
     Active Substance: PEMBROLIZUMAB
     Indication: Metastatic malignant melanoma
     Dosage: UNK
     Route: 042
     Dates: start: 202110, end: 202112

REACTIONS (6)
  - Colitis [Not Recovered/Not Resolved]
  - Gastric disorder [Recovering/Resolving]
  - Clostridium difficile infection [Recovering/Resolving]
  - Pancreatic failure [Recovering/Resolving]
  - Dyspepsia [Not Recovered/Not Resolved]
  - Pancreatitis relapsing [Not Recovered/Not Resolved]

NARRATIVE: CASE EVENT DATE: 20210101
